FAERS Safety Report 7920165-4 (Version None)
Quarter: 2011Q4

REPORT INFORMATION
  Report Type: 
  Country: None (occurrence: None)
  Receive Date: 20111117
  Receipt Date: 20111107
  Transmission Date: 20120403
  Serious: Yes (Hospitalization, Other)
  Sender: FDA-Public Use
  Company Number: US-BAYER-2011-031413

PATIENT
  Age: 39 Year
  Sex: Female
  Weight: 61.224 kg

DRUGS (13)
  1. LUNESTA [Concomitant]
     Dosage: 3 MG, UNK
     Dates: start: 20070529
  2. IMITREX [Concomitant]
     Dosage: UNK
     Dates: start: 20070529
  3. PROPOXYPHENE HYDROCHLORIDE [Concomitant]
     Dosage: 100 MG, UNK
     Dates: start: 20070615
  4. AMOXICILLIN [Concomitant]
     Dosage: 875 MG, UNK
     Dates: start: 20070516
  5. MAXALT [Concomitant]
     Dosage: 10 MG, UNK
     Dates: start: 20070516
  6. BUTALBITAL/ASA/CAFF/CODEINE [Concomitant]
     Dosage: 30 MG, UNK
     Dates: start: 20070529
  7. PROMETHAZINE [Concomitant]
     Dosage: 25 MG, UNK
     Dates: start: 20070615
  8. YASMIN [Suspect]
     Indication: ACNE
  9. HYDROCODONE BITARTRATE AND ACETAMINOPHEN [Concomitant]
     Dosage: UNK
     Dates: start: 20070516
  10. MUCUS RELIEF TABLETS [Concomitant]
     Dosage: UNK
     Dates: start: 20070516
  11. ALLEGRA-D [FEXOFENADINE HYDROCHLORIDE,PSEUDOEPHEDRINE HYDROCHLORID [Concomitant]
     Dosage: UNK
     Dates: start: 20070613
  12. YASMIN [Suspect]
     Indication: CONTRACEPTION
     Dosage: UNK, QD
     Route: 048
     Dates: start: 20030601, end: 20080701
  13. VENLAFAXINE [Concomitant]
     Dosage: 75 MG, UNK
     Dates: start: 20070529

REACTIONS (10)
  - EMOTIONAL DISTRESS [None]
  - GALLBLADDER DISORDER [None]
  - ASCITES [None]
  - INJURY [None]
  - CHOLECYSTITIS ACUTE [None]
  - POST PROCEDURAL BILE LEAK [None]
  - ANXIETY [None]
  - GASTROINTESTINAL DISORDER [None]
  - PAIN [None]
  - GENERAL PHYSICAL HEALTH DETERIORATION [None]
